FAERS Safety Report 5888437-5 (Version None)
Quarter: 2008Q3

REPORT INFORMATION
  Report Type: 
  Country: None (occurrence: None)
  Receive Date: 20080917
  Receipt Date: 20080917
  Transmission Date: 20090109
  Serious: Yes (Life-Threatening, Hospitalization)
  Sender: FDA-Public Use
  Company Number: None

PATIENT
  Sex: Female
  Weight: 49.8957 kg

DRUGS (1)
  1. EXTENDED PHENYTOIN SODIUM 100 MG UDL [Suspect]
     Indication: CONVULSION
     Dosage: 100 MG TID PO
     Route: 048
     Dates: start: 20080808, end: 20080808

REACTIONS (1)
  - STEVENS-JOHNSON SYNDROME [None]
